FAERS Safety Report 17061521 (Version 1)
Quarter: 2019Q4

REPORT INFORMATION
  Report Type: Spontaneous
  Country: US (occurrence: US)
  Receive Date: 20191121
  Receipt Date: 20191121
  Transmission Date: 20200122
  Serious: No
  Sender: FDA-Public Use
  Company Number: US-JNJFOC-20191130043

PATIENT
  Sex: Female

DRUGS (1)
  1. MENS ROGAINE EXTRA STRENGTH [Suspect]
     Active Substance: MINOXIDIL
     Indication: ALOPECIA
     Route: 061

REACTIONS (6)
  - Alopecia [Recovered/Resolved]
  - Trichorrhexis [Recovering/Resolving]
  - Product use issue [Unknown]
  - Product use in unapproved indication [Unknown]
  - Hair texture abnormal [Recovering/Resolving]
  - Intentional product misuse [Unknown]
